FAERS Safety Report 5751289-8 (Version None)
Quarter: 2008Q2

REPORT INFORMATION
  Report Type: 
  Country: None (occurrence: None)
  Receive Date: 20080528
  Receipt Date: 20080521
  Transmission Date: 20081010
  Serious: Yes (Hospitalization)
  Sender: FDA-Public Use
  Company Number: FR-PFIZER INC-2008043837

PATIENT
  Sex: Female

DRUGS (2)
  1. AMLOR [Suspect]
     Dosage: DAILY DOSE:10MG
     Route: 048
     Dates: start: 20080317, end: 20080318
  2. AMLOR [Suspect]
     Dosage: DAILY DOSE:20MG
     Route: 048
     Dates: start: 20080319, end: 20080331

REACTIONS (1)
  - DYSKINESIA [None]
